FAERS Safety Report 9362958 (Version 1)
Quarter: 2013Q2

REPORT INFORMATION
  Report Type: Report from Study
  Country: IN (occurrence: IN)
  Receive Date: 20130624
  Receipt Date: 20130624
  Transmission Date: 20140414
  Serious: Yes (Other)
  Sender: FDA-Public Use
  Company Number: IN-ROCHE-1239830

PATIENT
  Sex: Male

DRUGS (1)
  1. EXXURA [Suspect]
     Indication: HEPATITIS B
     Route: 058
     Dates: start: 20130515

REACTIONS (1)
  - White blood cell count decreased [Not Recovered/Not Resolved]
